FAERS Safety Report 9536868 (Version 1)
Quarter: 2013Q3

REPORT INFORMATION
  Report Type: Spontaneous
  Country: US (occurrence: None)
  Receive Date: 20130918
  Receipt Date: 20130918
  Transmission Date: 20140515
  Serious: No
  Sender: FDA-Public Use
  Company Number: None

PATIENT
  Age: 36 Year
  Sex: Female
  Weight: 98.6 kg

DRUGS (1)
  1. PARAGARD IUD SUPPOSED TO BE HORMONE FREE PARAGARD [Suspect]

REACTIONS (3)
  - Dyspareunia [None]
  - Embedded device [None]
  - Device breakage [None]
